FAERS Safety Report 6883205-X (Version None)
Quarter: 2010Q3

REPORT INFORMATION
  Report Type: 
  Country: None (occurrence: None)
  Receive Date: 20100727
  Receipt Date: 20071203
  Transmission Date: 20110219
  Serious: Yes (Hospitalization, Disabling, Other)
  Sender: FDA-Public Use
  Company Number: US-PFIZER INC-2006108925

PATIENT
  Sex: Male
  Weight: 70.3 kg

DRUGS (7)
  1. CELEBREX [Suspect]
     Indication: PAIN IN EXTREMITY
     Dates: start: 20030801
  2. CELEBREX [Suspect]
     Indication: RHEUMATOID ARTHRITIS
  3. BEXTRA [Suspect]
     Indication: PAIN IN EXTREMITY
     Route: 065
     Dates: start: 20030701
  4. BEXTRA [Suspect]
     Indication: RHEUMATOID ARTHRITIS
  5. VIOXX [Suspect]
     Indication: PRODUCT USED FOR UNKNOWN INDICATION
     Dates: start: 20030616
  6. CYCLOBENZAPRINE [Concomitant]
     Indication: PAIN
     Dates: start: 20030801, end: 20050601
  7. HYDROCODONE BITARTRATE [Concomitant]
     Indication: PAIN
     Dates: start: 20030801, end: 20050101

REACTIONS (1)
  - MYOCARDIAL INFARCTION [None]
